FAERS Safety Report 14538322 (Version 4)
Quarter: 2018Q3

REPORT INFORMATION
  Report Type: Report from Study
  Country: GB (occurrence: GB)
  Receive Date: 20180216
  Receipt Date: 20180831
  Transmission Date: 20181010
  Serious: Yes (Death, Hospitalization, Other)
  Sender: FDA-Public Use
  Company Number: GB-TAKEDA-2018TUS003864

PATIENT
  Age: 38 Year
  Sex: Female

DRUGS (2)
  1. AZATHIOPRINE. [Concomitant]
     Active Substance: AZATHIOPRINE
     Indication: COLITIS ULCERATIVE
     Dosage: 150 MG, UNK
     Route: 048
     Dates: start: 20071003, end: 20170807
  2. VEDOLIZUMAB [Suspect]
     Active Substance: VEDOLIZUMAB
     Indication: COLITIS ULCERATIVE
     Dosage: 300 MG, Q4WEEKS
     Route: 042
     Dates: start: 20160316, end: 20170725

REACTIONS (1)
  - Gastrointestinal cancer metastatic [Fatal]

NARRATIVE: CASE EVENT DATE: 20170701
